FAERS Safety Report 5915453-7 (Version None)
Quarter: 2008Q4

REPORT INFORMATION
  Report Type: 
  Country: None (occurrence: None)
  Receive Date: 20081010
  Receipt Date: 20080930
  Transmission Date: 20090506
  Serious: Yes (Other)
  Sender: FDA-Public Use
  Company Number: US-PFIZER INC-2008044626

PATIENT
  Sex: Female
  Weight: 122.9 kg

DRUGS (8)
  1. LYRICA [Suspect]
     Indication: PAIN
     Dates: start: 20070501
  2. LYRICA [Suspect]
     Indication: FIBROMYALGIA
  3. ALL OTHER THERAPEUTIC PRODUCTS [Suspect]
     Route: 042
  4. BENICAR HCT [Suspect]
     Indication: HYPERTENSION
     Dosage: TEXT:40/12.5 MG.
     Route: 048
  5. ZOLOFT [Concomitant]
  6. ALBUTEROL [Concomitant]
     Dosage: TEXT:2 PUFFS EVERY 4 HOURS PRN
  7. IBUPROFEN [Concomitant]
  8. MULTI-VITAMINS [Concomitant]

REACTIONS (4)
  - HYPOTENSION [None]
  - NOCTURIA [None]
  - ROTATOR CUFF SYNDROME [None]
  - URINARY TRACT INFECTION [None]
